FAERS Safety Report 6968827-X (Version None)
Quarter: 2010Q3

REPORT INFORMATION
  Report Type: 
  Country: None (occurrence: None)
  Receive Date: 20100902
  Receipt Date: 20100624
  Transmission Date: 20110219
  Serious: Yes (Disabling)
  Sender: FDA-Public Use
  Company Number: APP200900478

PATIENT
  Age: 55 Year
  Sex: Male
  Weight: 86.1834 kg

DRUGS (5)
  1. SENSORCAINE [Suspect]
     Indication: MUSCULOSKELETAL PAIN
     Dosage: INTRA-ARTICULAR, 15 ML, MIXED WITH 15 ML 2% LIDOCAINE
     Route: 014
     Dates: start: 20070522
  2. SENSORCAINE [Suspect]
     Indication: MUSCULOSKELETAL PAIN
     Dosage: INTRA-ARTICULAR, 15 ML, MIXED WITH 15 ML 2% LIDOCAINE
     Route: 014
     Dates: start: 20070522
  3. XYLOCAINE [Concomitant]
     Indication: MUSCULOSKELETAL PAIN
     Dosage: 15 ML, RIGHT SHOULDER
     Dates: start: 20070522
  4. STRYKER PAIN PUMP [Suspect]
     Indication: MUSCULOSKELETAL PAIN
     Dosage: RIGHT SHOULDER
     Dates: start: 20070522
  5. CLINDAMYCIN HCL [Concomitant]

REACTIONS (4)
  - JOINT INJURY [None]
  - MUSCULOSKELETAL DISCOMFORT [None]
  - MUSCULOSKELETAL DISORDER [None]
  - MUSCULOSKELETAL PAIN [None]
